FAERS Safety Report 6330149 (Version 6)
Quarter: 2012Q4

REPORT INFORMATION
  Report Type: 
  Country: GB (occurrence: TH)
  Receive Date: 20070611
  Receipt Date: 20121026
  Transmission Date: 20130627
  Serious: Yes (Life-Threatening, Hospitalization, Disabling)
  Sender: FDA-Public Use
  Company Number: PHHO2007TH05318

PATIENT
  Age: 31 Year
  Sex: Female
  Weight: 49 kg

DRUGS (3)
  1. ICL670A [Suspect]
     Indication: BLOOD IRON INCREASED
     Dosage: 20 mg/kg, QD
     Route: 048
     Dates: start: 20060927, end: 20070322
  2. FOLIC ACID [Concomitant]
  3. PARACETAMOL [Concomitant]

REACTIONS (12)
  - Renal tubular necrosis [Recovered/Resolved]
  - Renal failure acute [Recovered/Resolved]
  - Generalised oedema [Recovered/Resolved]
  - Lymphadenopathy [Recovered/Resolved]
  - Pyrexia [Recovered/Resolved]
  - Oliguria [Recovered/Resolved]
  - Blood creatinine increased [Recovered/Resolved]
  - Cryoglobulins present [Recovered/Resolved]
  - Pyelonephritis chronic [Recovered/Resolved]
  - Blood urea increased [Recovering/Resolving]
  - Streptococcal infection [Recovered/Resolved]
  - Glomerulonephritis proliferative [Recovered/Resolved]
